FAERS Safety Report 22198969 (Version 1)
Quarter: 2023Q2

REPORT INFORMATION
  Report Type: Spontaneous
  Country: None (occurrence: FR)
  Receive Date: 20230411
  Receipt Date: 20230411
  Transmission Date: 20230722
  Serious: Yes (Hospitalization)
  Sender: FDA-Public Use
  Company Number: FR-B.Braun Medical Inc.-2140170

PATIENT
  Age: 30 Year
  Sex: Male

DRUGS (10)
  1. ACETAMINOPHEN [Suspect]
     Active Substance: ACETAMINOPHEN
  2. DIPENTYLONE [Suspect]
     Active Substance: DIPENTYLONE
  3. COCAINE [Suspect]
     Active Substance: COCAINE
  4. MIDOMAFETAMINE [Suspect]
     Active Substance: MIDOMAFETAMINE
  5. DIHYDROCODEINE [Suspect]
     Active Substance: DIHYDROCODEINE
  6. OXAZEPAM [Suspect]
     Active Substance: OXAZEPAM
  7. METHYLPHENIDATE [Suspect]
     Active Substance: METHYLPHENIDATE
  8. ALCOHOL [Suspect]
     Active Substance: ALCOHOL
  9. UNSPECIFIED INGREDIENT [Suspect]
     Active Substance: UNSPECIFIED INGREDIENT
  10. KETAMINE [Suspect]
     Active Substance: KETAMINE

REACTIONS (3)
  - Tachycardia [Recovered/Resolved]
  - Agitation [Recovered/Resolved]
  - Fall [Recovered/Resolved]
